FAERS Safety Report 12277564 (Version 1)
Quarter: 2016Q2

REPORT INFORMATION
  Report Type: Spontaneous
  Country: BR (occurrence: BR)
  Receive Date: 20160418
  Receipt Date: 20160418
  Transmission Date: 20160815
  Serious: Yes (Disabling, Other)
  Sender: FDA-Public Use
  Company Number: BR-ELI_LILLY_AND_COMPANY-BR201503000189

PATIENT
  Sex: Female

DRUGS (1)
  1. FORTEO [Suspect]
     Active Substance: TERIPARATIDE
     Indication: OSTEOPOROSIS
     Dosage: 1 DF, UNK
     Route: 058
     Dates: start: 201501

REACTIONS (8)
  - Anaemia [Unknown]
  - Drug dose omission [Unknown]
  - Dizziness [Unknown]
  - Underdose [Unknown]
  - Intentional product use issue [Unknown]
  - Umbilical hernia [Unknown]
  - Injection site pain [Unknown]
  - Visual impairment [Unknown]

NARRATIVE: CASE EVENT DATE: 201501
